FAERS Safety Report 10707481 (Version 1)
Quarter: 2015Q1

REPORT INFORMATION
  Report Type: Spontaneous
  Country: FR (occurrence: FR)
  Receive Date: 20150113
  Receipt Date: 20150113
  Transmission Date: 20150721
  Serious: Yes (Hospitalization)
  Sender: FDA-Public Use
  Company Number: FR-SA-2015SA002840

PATIENT
  Age: 79 Year
  Sex: Female

DRUGS (7)
  1. PREVISCAN [Suspect]
     Active Substance: FLUINDIONE
     Indication: ARRHYTHMIA
     Route: 065
     Dates: start: 20140517
  2. PREVISCAN [Suspect]
     Active Substance: FLUINDIONE
     Indication: ARRHYTHMIA
     Dosage: 2 DAYS ON 3
     Route: 065
  3. PREVISCAN [Suspect]
     Active Substance: FLUINDIONE
     Indication: ARRHYTHMIA
     Route: 065
  4. PREVISCAN [Suspect]
     Active Substance: FLUINDIONE
     Indication: ARRHYTHMIA
     Dosage: 2 DAYS ON 3
     Route: 065
     Dates: start: 20140523
  5. COAPROVEL [Concomitant]
     Active Substance: HYDROCHLOROTHIAZIDE\IRBESARTAN
  6. LOVENOX [Suspect]
     Active Substance: ENOXAPARIN SODIUM
     Route: 065
     Dates: start: 20140504, end: 20140523
  7. PREVISCAN [Suspect]
     Active Substance: FLUINDIONE
     Indication: ARRHYTHMIA
     Dosage: 2 DAYS ON 3
     Route: 065

REACTIONS (4)
  - Haematoma [Recovered/Resolved]
  - International normalised ratio increased [Recovered/Resolved]
  - Overdose [Unknown]
  - Anaemia [Recovered/Resolved]

NARRATIVE: CASE EVENT DATE: 201405
